FAERS Safety Report 19391454 (Version 2)
Quarter: 2021Q2

REPORT INFORMATION
  Report Type: Spontaneous
  Country: US (occurrence: US)
  Receive Date: 20210609
  Receipt Date: 20210610
  Transmission Date: 20210717
  Serious: No
  Sender: FDA-Public Use
  Company Number: US-BRISTOL-MYERS SQUIBB COMPANY-BMS-2021-055774

PATIENT
  Age: 71 Year
  Sex: Female
  Weight: 62.6 kg

DRUGS (1)
  1. KENALOG?40 [Suspect]
     Active Substance: TRIAMCINOLONE ACETONIDE
     Indication: EXOSTOSIS
     Dosage: ONLY ONE INJECTION
     Route: 065
     Dates: start: 20210601

REACTIONS (3)
  - Intentional product use issue [Unknown]
  - Pain in extremity [Unknown]
  - Palpitations [Unknown]

NARRATIVE: CASE EVENT DATE: 20210601
